FAERS Safety Report 9725545 (Version 1)
Quarter: 2013Q4

REPORT INFORMATION
  Report Type: Report from Study
  Country: TR (occurrence: TR)
  Receive Date: 20131203
  Receipt Date: 20131203
  Transmission Date: 20140711
  Serious: Yes (Death)
  Sender: FDA-Public Use
  Company Number: TR-SA-2013SA121903

PATIENT
  Age: 79 Year
  Sex: Female
  Weight: 80 kg

DRUGS (10)
  1. PLAVIX [Suspect]
     Indication: CORONARY ARTERY DISEASE
     Route: 065
  2. BELOC [Suspect]
     Indication: CORONARY ARTERY DISEASE
     Route: 065
     Dates: start: 20130222
  3. DIGOXIN [Suspect]
     Indication: CORONARY ARTERY DISEASE
     Dosage: DOSE: 1X0.125 MG
     Route: 065
  4. ACE INHIBITOR NOS [Concomitant]
     Indication: CORONARY ARTERY DISEASE
  5. ACE INHIBITOR NOS [Concomitant]
     Indication: HYPERTENSION
  6. SPIRONOLACTONE [Concomitant]
     Indication: DIURETIC THERAPY
  7. SPIRONOLACTONE [Concomitant]
     Indication: CARDIAC FAILURE
  8. BETA BLOCKING AGENTS [Concomitant]
     Indication: HYPERTENSION
  9. BETA BLOCKING AGENTS [Concomitant]
     Indication: CORONARY ARTERY DISEASE
  10. HMG COA REDUCTASE INHIBITORS [Concomitant]
     Indication: HYPERLIPIDAEMIA

REACTIONS (1)
  - Death [Fatal]
